FAERS Safety Report 5118049-2 (Version None)
Quarter: 2006Q3

REPORT INFORMATION
  Report Type: 
  Country: None (occurrence: None)
  Receive Date: 20060929
  Receipt Date: 20060927
  Transmission Date: 20061208
  Serious: Yes (Hospitalization)
  Sender: FDA-Public Use
  Company Number: US-ROXANE LABORATORIES, INC-2006-DE-05146GD

PATIENT
  Sex: Male

DRUGS (2)
  1. NAPROXEN [Suspect]
     Indication: MIGRAINE
  2. TOPIRAMATE [Concomitant]
     Indication: PROPHYLAXIS

REACTIONS (5)
  - BODY TEMPERATURE DECREASED [None]
  - DRUG ABUSER [None]
  - DRUG INEFFECTIVE [None]
  - HYPOACUSIS [None]
  - PARAESTHESIA [None]
